FAERS Safety Report 9637173 (Version 1)
Quarter: 2013Q4

REPORT INFORMATION
  Report Type: Spontaneous
  Country: FR (occurrence: FR)
  Receive Date: 20131022
  Receipt Date: 20131022
  Transmission Date: 20140711
  Serious: No
  Sender: FDA-Public Use
  Company Number: FR-JNJFOC-20131010762

PATIENT
  Age: 92 Year
  Sex: Male

DRUGS (4)
  1. DUROGESIC [Suspect]
     Indication: PALLIATIVE CARE
     Route: 062
  2. SPASFON [Concomitant]
     Route: 065
  3. IXPRIM [Concomitant]
     Route: 065
  4. ABSTRAL [Concomitant]
     Route: 065

REACTIONS (2)
  - Drug prescribing error [Unknown]
  - Inappropriate schedule of drug administration [Unknown]
